FAERS Safety Report 6646432-2 (Version None)
Quarter: 2010Q1

REPORT INFORMATION
  Report Type: 
  Country: None (occurrence: None)
  Receive Date: 20100322
  Receipt Date: 20100322
  Transmission Date: 20100710
  Serious: Yes (Hospitalization)
  Sender: FDA-Public Use
  Company Number: None

PATIENT
  Sex: Female
  Weight: 81.6475 kg

DRUGS (1)
  1. TOPAMAX [Suspect]
     Indication: MIGRAINE
     Dosage: 25MG SPRINKLE TO 50MG AFTER 7 DAYS MOUTH
     Route: 048
     Dates: start: 20091124, end: 20091231

REACTIONS (17)
  - ABNORMAL BEHAVIOUR [None]
  - ABNORMAL DREAMS [None]
  - AGEUSIA [None]
  - CONVULSION [None]
  - DECREASED APPETITE [None]
  - DELIRIUM [None]
  - DELUSION [None]
  - DEPERSONALISATION [None]
  - DISORIENTATION [None]
  - FEELING ABNORMAL [None]
  - HYPOPHAGIA [None]
  - NIGHTMARE [None]
  - PARAESTHESIA [None]
  - PARANOIA [None]
  - PSYCHOMOTOR HYPERACTIVITY [None]
  - SOMNOLENCE [None]
  - TREMOR [None]
